FAERS Safety Report 6497795-2 (Version None)
Quarter: 2009Q4

REPORT INFORMATION
  Report Type: 
  Country: None (occurrence: None)
  Receive Date: 20091215
  Receipt Date: 20091211
  Transmission Date: 20100525
  Serious: Yes (Death)
  Sender: FDA-Public Use
  Company Number: US-JNJFOC-20091204006

PATIENT
  Age: 48 Year
  Sex: Male
  Weight: 39.01 kg

DRUGS (2)
  1. FENTANYL [Suspect]
     Indication: DRUG USE FOR UNKNOWN INDICATION
     Dosage: 2 X 100 UG/HR PATCH
     Route: 062
  2. OXYCODONE [Concomitant]
     Route: 065

REACTIONS (1)
  - HEAD AND NECK CANCER [None]
